FAERS Safety Report 4621507-8 (Version None)
Quarter: 2005Q1

REPORT INFORMATION
  Report Type: 
  Country: None (occurrence: None)
  Receive Date: 20050328
  Receipt Date: 20050311
  Transmission Date: 20050727
  Serious: Yes (Hospitalization)
  Sender: FDA-Public Use
  Company Number: 6013551

PATIENT
  Age: 37 Year
  Sex: Female

DRUGS (5)
  1. LEVOTHYROXINE SODIUM [Suspect]
     Dosage: 75 MCG (75 MCG, 1 IN 1 D)
     Route: 048
     Dates: start: 19890715
  2. CLIMASTON (TABLET) (DYDROGESTERONE, ESTRADIOL VALERATE) [Suspect]
     Route: 048
     Dates: start: 20040515
  3. SAIZEN [Concomitant]
  4. HYDROCORTISONE (HYDROCORITISONE) [Suspect]
     Dosage: 20 MG , 1IN 1 DAY
     Dates: start: 19740715
  5. ACTONEL (TABLET) (RISEDRONATE SODIUM) [Suspect]
     Indication: OSTEOPOROSIS
     Dosage: 5 MG (35 MG, 1 IN 1 WK)
     Route: 048
     Dates: start: 20040602, end: 20030113

REACTIONS (2)
  - ADRENAL INSUFFICIENCY [None]
  - GASTROENTERITIS [None]
